FAERS Safety Report 18215444 (Version 1)
Quarter: 2020Q3

REPORT INFORMATION
  Report Type: Spontaneous
  Country: US (occurrence: US)
  Receive Date: 20200901
  Receipt Date: 20200901
  Transmission Date: 20201103
  Serious: No
  Sender: FDA-Public Use
  Company Number: US-GLENMARK PHARMACEUTICALS-2020GMK046125

PATIENT

DRUGS (3)
  1. TRIAMCINOLONE ACETONIDE CREAM USP [Suspect]
     Active Substance: TRIAMCINOLONE ACETONIDE
     Indication: PROMOTION OF WOUND HEALING
     Dosage: UNK, TID
     Route: 061
     Dates: start: 2019, end: 2019
  2. TRIAMCINOLONE ACETONIDE CREAM USP [Suspect]
     Active Substance: TRIAMCINOLONE ACETONIDE
     Indication: SKIN WOUND
  3. TRIAMCINOLONE ACETONIDE CREAM USP [Suspect]
     Active Substance: TRIAMCINOLONE ACETONIDE
     Indication: POSTOPERATIVE CARE

REACTIONS (3)
  - Application site pain [Not Recovered/Not Resolved]
  - Product use in unapproved indication [Unknown]
  - Application site erythema [Not Recovered/Not Resolved]

NARRATIVE: CASE EVENT DATE: 2019
